FAERS Safety Report 17182220 (Version 1)
Quarter: 2019Q4

REPORT INFORMATION
  Report Type: Spontaneous
  Country: CN (occurrence: CN)
  Receive Date: 20191220
  Receipt Date: 20191220
  Transmission Date: 20200122
  Serious: Yes (Hospitalization, Other)
  Sender: FDA-Public Use
  Company Number: CN-GLAXOSMITHKLINE-CN2019APC228473

PATIENT

DRUGS (3)
  1. LAMIVUDINE. [Suspect]
     Active Substance: LAMIVUDINE
     Indication: HIV INFECTION
     Dosage: UNK
     Route: 048
  2. NEVIRAPINE. [Suspect]
     Active Substance: NEVIRAPINE
     Indication: HIV INFECTION
     Dosage: UNK
     Route: 048
  3. ZIDOVUDINE. [Suspect]
     Active Substance: ZIDOVUDINE
     Indication: HIV INFECTION
     Dosage: UNK
     Route: 048

REACTIONS (11)
  - Joint swelling [Unknown]
  - Limb asymmetry [Unknown]
  - Osteonecrosis [Unknown]
  - Gait disturbance [Unknown]
  - Shoulder deformity [Unknown]
  - Fall [Unknown]
  - Joint range of motion decreased [Unknown]
  - Hypokinesia [Unknown]
  - Pain [Unknown]
  - Arthralgia [Unknown]
  - Radius fracture [Unknown]

NARRATIVE: CASE EVENT DATE: 2013
